FAERS Safety Report 23654217 (Version 4)
Quarter: 2024Q2

REPORT INFORMATION
  Report Type: Spontaneous
  Country: US (occurrence: US)
  Receive Date: 20240320
  Receipt Date: 20240608
  Transmission Date: 20240716
  Serious: Yes (Other)
  Sender: FDA-Public Use
  Company Number: US-AMGEN-USASP2024056880

PATIENT

DRUGS (3)
  1. OTEZLA [Suspect]
     Active Substance: APREMILAST
     Indication: Behcet^s syndrome
     Dosage: UNK
     Route: 065
  2. COLCHICINE [Concomitant]
     Active Substance: COLCHICINE
     Dosage: UNK
  3. ARICEF [Concomitant]
     Dosage: UNK
     Route: 065

REACTIONS (3)
  - Sudden hearing loss [Recovering/Resolving]
  - Adverse drug reaction [Recovering/Resolving]
  - Sleep apnoea syndrome [Recovering/Resolving]
